FAERS Safety Report 26107146 (Version 1)
Quarter: 2025Q4

REPORT INFORMATION
  Report Type: Spontaneous
  Country: EU (occurrence: EU)
  Receive Date: 20251201
  Receipt Date: 20251201
  Transmission Date: 20260118
  Serious: Yes (Hospitalization)
  Sender: MYLAN
  Company Number: EU-MYLANLABS-2025M1099223

PATIENT
  Age: 75 Year
  Sex: Male

DRUGS (3)
  1. PROPRANOLOL [Suspect]
     Active Substance: PROPRANOLOL HYDROCHLORIDE
     Indication: Portal hypertension
     Dosage: 80 MILLIGRAM, BID
  2. OCTREOTIDE [Concomitant]
     Active Substance: OCTREOTIDE
     Indication: Microcytic anaemia
     Dosage: 20 MILLIGRAM, MONTHLY, LONG-ACTING RELEASE
  3. OCTREOTIDE [Concomitant]
     Active Substance: OCTREOTIDE
     Indication: Gastrointestinal angiodysplasia

REACTIONS (1)
  - Drug ineffective [Unknown]

NARRATIVE: CASE EVENT DATE: 20230101
